FAERS Safety Report 10953097 (Version 2)
Quarter: 2015Q2

REPORT INFORMATION
  Report Type: Spontaneous
  Country: JP (occurrence: JP)
  Receive Date: 20150325
  Receipt Date: 20150605
  Transmission Date: 20150821
  Serious: Yes (Other)
  Sender: FDA-Public Use
  Company Number: JP-PFIZER INC-2015099372

PATIENT
  Age: 81 Year
  Sex: Female

DRUGS (4)
  1. AZORGA [Suspect]
     Active Substance: BRINZOLAMIDE\TIMOLOL MALEATE
  2. XALATAN [Suspect]
     Active Substance: LATANOPROST
     Indication: GLAUCOMA
     Dosage: UNK
     Route: 047
  3. NEXIUM [Suspect]
     Active Substance: ESOMEPRAZOLE MAGNESIUM
     Indication: GASTROOESOPHAGEAL REFLUX DISEASE
     Dosage: UNK
     Route: 048
  4. ZESTRIL [Suspect]
     Active Substance: LISINOPRIL
     Indication: HYPERTENSION
     Route: 048

REACTIONS (4)
  - Chest discomfort [Unknown]
  - Throat irritation [Unknown]
  - Abdominal discomfort [Unknown]
  - Cough [Unknown]
